FAERS Safety Report 7031065-9 (Version None)
Quarter: 2010Q4

REPORT INFORMATION
  Report Type: 
  Country: None (occurrence: None)
  Receive Date: 20101006
  Receipt Date: 20100930
  Transmission Date: 20110411
  Serious: Yes (Death)
  Sender: FDA-Public Use
  Company Number: US-CELGENEUS-163-21880-10100086

PATIENT
  Sex: Male
  Weight: 88.1 kg

DRUGS (9)
  1. REVLIMID [Suspect]
     Indication: MULTIPLE MYELOMA
     Route: 048
     Dates: start: 20100917, end: 20100930
  2. VELCADE [Suspect]
     Indication: MULTIPLE MYELOMA
     Route: 051
     Dates: start: 20100917, end: 20100930
  3. DECADRON [Suspect]
     Indication: MULTIPLE MYELOMA
     Route: 048
     Dates: start: 20100917, end: 20100930
  4. VORINOSTAT [Suspect]
     Indication: MULTIPLE MYELOMA
     Route: 048
     Dates: start: 20100917, end: 20100930
  5. COLACE [Concomitant]
     Indication: CONSTIPATION
     Route: 048
     Dates: start: 20100816, end: 20100930
  6. LORATADINE [Concomitant]
     Route: 048
     Dates: start: 20100826, end: 20100930
  7. METHOCARBAMOL [Concomitant]
     Route: 048
     Dates: start: 20100816, end: 20100930
  8. LEVOTHYROXINE [Concomitant]
     Indication: HYPOTHYROIDISM
     Route: 048
     Dates: start: 20100826, end: 20100930
  9. FENOFIBRIC ACID [Concomitant]
     Route: 048
     Dates: start: 20100816, end: 20100930

REACTIONS (2)
  - CARDIO-RESPIRATORY ARREST [None]
  - DYSPNOEA [None]
